FAERS Safety Report 6274999-5 (Version None)
Quarter: 2009Q3

REPORT INFORMATION
  Report Type: 
  Country: None (occurrence: None)
  Receive Date: 20090717
  Receipt Date: 20090706
  Transmission Date: 20100115
  Serious: Yes (Hospitalization)
  Sender: FDA-Public Use
  Company Number: 8045666

PATIENT
  Age: 45 Year
  Sex: Female

DRUGS (3)
  1. KEPPRA [Suspect]
     Indication: EPILEPSY
     Dosage: 1500 MG 2/D PO
     Route: 048
     Dates: start: 20080301
  2. PRAVASTATINE /00880401/ [Concomitant]
  3. TEGRETOL [Concomitant]

REACTIONS (10)
  - ASTHENIA [None]
  - BURNS THIRD DEGREE [None]
  - CONVULSION [None]
  - DEPRESSION [None]
  - DIARRHOEA [None]
  - IRRITABILITY [None]
  - MEMORY IMPAIRMENT [None]
  - SKIN GRAFT [None]
  - SUICIDAL IDEATION [None]
  - THERAPEUTIC PRODUCT INEFFECTIVE [None]
